FAERS Safety Report 8759555 (Version 1)
Quarter: 2012Q4

REPORT INFORMATION
  Report Type: 
  Country: NL (occurrence: NL)
  Receive Date: 20120829
  Receipt Date: 20120829
  Transmission Date: 20130627
  Serious: Yes (Other)
  Sender: FDA-Public Use
  Company Number: PHHY2010NL094754

PATIENT
  Age: 61 Year
  Sex: Female

DRUGS (4)
  1. BISOLBRUIS [Suspect]
  2. DOXYCYCLINE [Suspect]
     Indication: CHRONIC OBSTRUCTIVE PULMONARY DISEASE
     Dosage: 100 mg
  3. CALCIUM CARBONATE [Concomitant]
  4. ALENDRONATE SODIUM [Concomitant]

REACTIONS (1)
  - Anosmia [Not Recovered/Not Resolved]
